FAERS Safety Report 24921590 (Version 2)
Quarter: 2025Q1

REPORT INFORMATION
  Report Type: Spontaneous
  Country: CN (occurrence: CN)
  Receive Date: 20250204
  Receipt Date: 20250207
  Transmission Date: 20250408
  Serious: Yes (Hospitalization)
  Sender: ROCHE
  Company Number: CN-BoehringerIngelheim-2025-BI-004427

PATIENT
  Age: 75 Year
  Sex: Male
  Weight: 44 kg

DRUGS (2)
  1. ALTEPLASE [Suspect]
     Active Substance: ALTEPLASE
     Indication: Thrombolysis
     Route: 040
     Dates: start: 20250107, end: 20250107
  2. ALTEPLASE [Suspect]
     Active Substance: ALTEPLASE
     Route: 040
     Dates: start: 20250107, end: 20250107

REACTIONS (13)
  - Heart rate decreased [Unknown]
  - Angioedema [Recovering/Resolving]
  - Swelling [Recovering/Resolving]
  - Chest discomfort [Recovering/Resolving]
  - Pyrexia [Unknown]
  - Cough [Unknown]
  - Productive cough [Unknown]
  - Chronic obstructive pulmonary disease [Unknown]
  - Melaena [Not Recovered/Not Resolved]
  - Infection [Unknown]
  - Gingival bleeding [Unknown]
  - Tongue haemorrhage [Unknown]
  - Oxygen saturation abnormal [Recovering/Resolving]

NARRATIVE: CASE EVENT DATE: 20250107
